FAERS Safety Report 8616364-9 (Version None)
Quarter: 2012Q3

REPORT INFORMATION
  Report Type: 
  Country: None (occurrence: None)
  Receive Date: 20120823
  Receipt Date: 20120814
  Transmission Date: 20120928
  Serious: Yes (Hospitalization)
  Sender: FDA-Public Use
  Company Number: BR-ASTRAZENECA-2012SE58112

PATIENT
  Age: 62 Year
  Sex: Male

DRUGS (1)
  1. NEXIUM [Suspect]
     Indication: HIATUS HERNIA
     Route: 048
     Dates: start: 20080101

REACTIONS (3)
  - VENOUS OCCLUSION [None]
  - CHEST PAIN [None]
  - OFF LABEL USE [None]
